FAERS Safety Report 7823077-X (Version None)
Quarter: 2011Q4

REPORT INFORMATION
  Report Type: 
  Country: None (occurrence: None)
  Receive Date: 20111018
  Receipt Date: 20110104
  Transmission Date: 20120403
  Serious: Yes (Hospitalization)
  Sender: FDA-Public Use
  Company Number: US-ASTRAZENECA-2011SE00424

PATIENT
  Age: 14698 Day
  Sex: Male

DRUGS (5)
  1. TRACLEER [Suspect]
     Indication: PULMONARY ARTERIAL HYPERTENSION
     Route: 048
     Dates: start: 20070815, end: 20080201
  2. SYMBICORT [Suspect]
     Route: 055
     Dates: start: 20100928
  3. COUMADIN [Concomitant]
     Indication: SARCOIDOSIS
  4. PREDNISONE [Concomitant]
     Dates: start: 20070825
  5. TRACLEER [Suspect]
     Route: 048
     Dates: start: 20080202

REACTIONS (2)
  - SUPRAVENTRICULAR TACHYCARDIA [None]
  - PALPITATIONS [None]
